FAERS Safety Report 7461667-7 (Version None)
Quarter: 2011Q2

REPORT INFORMATION
  Report Type: 
  Country: None (occurrence: None)
  Receive Date: 20110506
  Receipt Date: 20110421
  Transmission Date: 20111010
  Serious: No
  Sender: FDA-Public Use
  Company Number: US-B.I. PHARMACEUTICALS,INC./RIDGEFIELD-2011-BP-07890BP

PATIENT
  Age: 51 Year
  Sex: Male

DRUGS (9)
  1. AMLODIPINE [Concomitant]
     Dosage: 5 MG
     Route: 048
  2. SIMVASTATIN [Concomitant]
     Dosage: 40 MG
     Route: 048
  3. GLIMEPIRIDE [Concomitant]
     Dosage: 8 MG
     Route: 048
  4. HYDROCHLOROTHIAZIDE [Concomitant]
     Dosage: 12.5 MG
     Route: 048
  5. LISINOPRIL [Concomitant]
     Dosage: 20 MG
     Route: 048
  6. SPIRONOLACTONE [Concomitant]
     Route: 048
  7. PRADAXA [Suspect]
     Indication: ATRIAL FIBRILLATION
     Dosage: 300 MG
     Route: 048
     Dates: start: 20110214
  8. COREG [Concomitant]
     Dosage: 50 MG
     Route: 048
  9. METFORMIN [Concomitant]
     Dosage: 2000 MG
     Route: 048

REACTIONS (1)
  - DRUG LEVEL BELOW THERAPEUTIC [None]
